FAERS Safety Report 7705546-6 (Version None)
Quarter: 2011Q3

REPORT INFORMATION
  Report Type: 
  Country: None (occurrence: None)
  Receive Date: 20110823
  Receipt Date: 20110823
  Transmission Date: 20111222
  Serious: Yes (Other)
  Sender: FDA-Public Use
  Company Number: None

PATIENT
  Age: 57 Year
  Sex: Female
  Weight: 94.1 kg

DRUGS (7)
  1. NORTRIPTYLINE HCL [Concomitant]
  2. OXYBUTININ [Concomitant]
  3. FLEXERIL [Concomitant]
  4. SIMAVASTATIN [Concomitant]
  5. COPAXONE [Concomitant]
  6. PROVIGIL [Concomitant]
  7. AMPYRA [Suspect]
     Indication: MULTIPLE SCLEROSIS
     Dosage: 10 MG BID PO
     Route: 048
     Dates: start: 20110401

REACTIONS (1)
  - URINARY TRACT INFECTION [None]
